FAERS Safety Report 9013197 (Version 3)
Quarter: 2013Q3

REPORT INFORMATION
  Report Type: Spontaneous
  Country: US (occurrence: US)
  Receive Date: 20130115
  Receipt Date: 20130902
  Transmission Date: 20140515
  Serious: Yes (Hospitalization)
  Sender: FDA-Public Use
  Company Number: US-BIOGENIDEC-2013BI003649

PATIENT
  Age: 52 Year
  Sex: Female

DRUGS (4)
  1. TYSABRI [Suspect]
     Indication: MULTIPLE SCLEROSIS
     Route: 042
     Dates: start: 20120120, end: 20130214
  2. MORPHINE VIA PUMP [Concomitant]
     Indication: BACK PAIN
     Dates: start: 2009
  3. NORCO [Concomitant]
     Indication: BACK PAIN
     Route: 048
     Dates: start: 2009
  4. LORTAB [Concomitant]
     Indication: BACK PAIN
     Route: 048
     Dates: start: 2009

REACTIONS (5)
  - Pneumonia [Recovered/Resolved]
  - Back pain [Not Recovered/Not Resolved]
  - Body temperature [Recovered/Resolved]
  - Dyspnoea [Recovered/Resolved]
  - Lung disorder [Not Recovered/Not Resolved]
